FAERS Safety Report 6819863-5 (Version None)
Quarter: 2010Q2

REPORT INFORMATION
  Report Type: 
  Country: None (occurrence: None)
  Receive Date: 20100630
  Receipt Date: 20100623
  Transmission Date: 20101027
  Serious: Yes (Hospitalization)
  Sender: FDA-Public Use
  Company Number: ABX29-08-0372

PATIENT
  Age: 69 Year
  Sex: Female
  Weight: 61.6 kg

DRUGS (2)
  1. ABRAXANE [Suspect]
     Indication: BREAST CANCER
     Dosage: (164 MF), INTRAVENOUS
     Route: 042
     Dates: start: 20080819
  2. CARBOPLATIN [Suspect]
     Dosage: (197 MG), INTRAVENOUS
     Route: 042
     Dates: start: 20080819

REACTIONS (1)
  - HERPES ZOSTER DISSEMINATED [None]
